APPROVED DRUG PRODUCT: SCOPOLAMINE
Active Ingredient: SCOPOLAMINE
Strength: 1MG/72HR
Dosage Form/Route: SYSTEM;TRANSDERMAL
Application: A217893 | Product #001 | TE Code: AB
Applicant: ZYDUS PHARMACEUTICALS USA INC
Approved: Aug 29, 2024 | RLD: No | RS: No | Type: RX